FAERS Safety Report 5012327-3 (Version None)
Quarter: 2006Q2

REPORT INFORMATION
  Report Type: 
  Country: None (occurrence: None)
  Receive Date: 20060525
  Receipt Date: 20060525
  Transmission Date: 20061013
  Serious: Yes (Life-Threatening, Hospitalization)
  Sender: FDA-Public Use
  Company Number: None

PATIENT
  Age: 54 Year
  Sex: Male
  Weight: 109 kg

DRUGS (1)
  1. LISINOPRIL [Suspect]
     Dosage: 20 MG PO DAILY
     Route: 048
     Dates: start: 20060210

REACTIONS (4)
  - DYSPNOEA EXERTIONAL [None]
  - OEDEMA PERIPHERAL [None]
  - RENAL FAILURE [None]
  - URINARY TRACT OBSTRUCTION [None]
